FAERS Safety Report 9175351 (Version 3)
Quarter: 2013Q2

REPORT INFORMATION
  Report Type: Spontaneous
  Country: US (occurrence: US)
  Receive Date: 20130320
  Receipt Date: 20130401
  Transmission Date: 20140414
  Serious: Yes (Hospitalization)
  Sender: FDA-Public Use
  Company Number: US-BAXTER-2013BAX009293

PATIENT
  Age: 70 Year
  Sex: Male

DRUGS (1)
  1. DIANEAL LOW CALCIUM [Suspect]
     Indication: PERITONEAL DIALYSIS
     Route: 033

REACTIONS (6)
  - Hypoglycaemia [Unknown]
  - Pericardial effusion [Unknown]
  - Abnormal behaviour [Unknown]
  - Contusion [Unknown]
  - Abdominal pain upper [Recovered/Resolved]
  - Discomfort [Unknown]
